FAERS Safety Report 10641366 (Version 2)
Quarter: 2014Q4

REPORT INFORMATION
  Report Type: Report from Study
  Country: HN (occurrence: HN)
  Receive Date: 20141209
  Receipt Date: 20141211
  Transmission Date: 20150529
  Serious: Yes (Death)
  Sender: FDA-Public Use
  Company Number: PHHY2014HN159268

PATIENT
  Age: 84 Year
  Weight: 60.6 kg

DRUGS (1)
  1. GLIVEC [Suspect]
     Active Substance: IMATINIB MESYLATE
     Indication: GASTROINTESTINAL STROMAL TUMOUR
     Dosage: 400 MG, QD
     Route: 048
     Dates: start: 201209, end: 201410

REACTIONS (17)
  - Eating disorder [Unknown]
  - Cognitive disorder [Unknown]
  - Blindness [Unknown]
  - Death [Fatal]
  - Dyspnoea [Unknown]
  - Insomnia [Unknown]
  - Abnormal behaviour [Unknown]
  - Speech disorder [Unknown]
  - Hypertension [Unknown]
  - Feeling abnormal [Unknown]
  - Feeling hot [Unknown]
  - Feeling of despair [Unknown]
  - Tremor [Unknown]
  - Asthenia [Unknown]
  - Gait disturbance [Unknown]
  - Hallucination [Unknown]
  - Musculoskeletal stiffness [Unknown]

NARRATIVE: CASE EVENT DATE: 201409
